FAERS Safety Report 15334574 (Version 1)
Quarter: 2018Q3

REPORT INFORMATION
  Report Type: Spontaneous
  Country: US (occurrence: US)
  Receive Date: 20180830
  Receipt Date: 20180830
  Transmission Date: 20181010
  Serious: Yes (Other)
  Sender: FDA-Public Use
  Company Number: US-JNJFOC-20180829560

PATIENT
  Sex: Male
  Weight: 70.31 kg

DRUGS (4)
  1. DEXAMETHASONE. [Suspect]
     Active Substance: DEXAMETHASONE
     Indication: PLASMA CELL MYELOMA
     Dates: start: 2018
  2. LENALIDOMIDE [Concomitant]
     Active Substance: LENALIDOMIDE
     Indication: PLASMA CELL MYELOMA
     Route: 065
     Dates: start: 2018
  3. DARZALEX [Suspect]
     Active Substance: DARATUMUMAB
     Indication: PLASMA CELL MYELOMA
     Dosage: EVERY 2 WEEKS
     Route: 042
     Dates: start: 2018
  4. DARZALEX [Suspect]
     Active Substance: DARATUMUMAB
     Indication: PLASMA CELL MYELOMA
     Dosage: 8 WEEKLY INFUSIONS
     Route: 042
     Dates: start: 201802

REACTIONS (1)
  - Dementia Alzheimer^s type [Unknown]

NARRATIVE: CASE EVENT DATE: 2018
